FAERS Safety Report 15738440 (Version 8)
Quarter: 2019Q1

REPORT INFORMATION
  Report Type: Report from Study
  Country: US (occurrence: US)
  Receive Date: 20181219
  Receipt Date: 20190311
  Transmission Date: 20190417
  Serious: Yes (Other)
  Sender: FDA-Public Use
  Company Number: US-GILEAD-2018-0380686

PATIENT
  Age: 53 Year
  Sex: Female

DRUGS (3)
  1. AMBRISENTAN [Suspect]
     Active Substance: AMBRISENTAN
     Indication: PULMONARY ARTERIAL HYPERTENSION
     Dosage: 10 MG
     Route: 065
     Dates: start: 20160601
  2. ADEMPAS [Suspect]
     Active Substance: RIOCIGUAT
     Indication: PULMONARY HYPERTENSION
     Route: 065
     Dates: start: 20160520
  3. AMBRISENTAN [Suspect]
     Active Substance: AMBRISENTAN
     Dosage: 5 MG, QD
     Route: 065
     Dates: start: 20160609

REACTIONS (15)
  - Feeling abnormal [Not Recovered/Not Resolved]
  - Loss of consciousness [Not Recovered/Not Resolved]
  - Insomnia [Unknown]
  - Dizziness [Not Recovered/Not Resolved]
  - Pneumonia [Recovered/Resolved]
  - Fatigue [Unknown]
  - Treatment noncompliance [Not Recovered/Not Resolved]
  - Fluid retention [Not Recovered/Not Resolved]
  - Malaise [Not Recovered/Not Resolved]
  - Head injury [Unknown]
  - Product dose omission [Recovered/Resolved]
  - Intentional product use issue [Not Recovered/Not Resolved]
  - Pulmonary arterial hypertension [Unknown]
  - Fall [Unknown]
  - Product use issue [Recovered/Resolved]

NARRATIVE: CASE EVENT DATE: 201811
